FAERS Safety Report 4972055-7 (Version None)
Quarter: 2006Q2

REPORT INFORMATION
  Report Type: 
  Country: None (occurrence: None)
  Receive Date: 20060407
  Receipt Date: 20060327
  Transmission Date: 20061013
  Serious: Yes (Death)
  Sender: FDA-Public Use
  Company Number: TCI2006A01421

PATIENT
  Age: 65 Year
  Sex: Male

DRUGS (1)
  1. TAKEPRON CAPSULES 15 (LANSOPRAZOLE) [Suspect]
     Dosage: PER ORAL
     Route: 048
     Dates: start: 20050101, end: 20050101

REACTIONS (1)
  - STEVENS-JOHNSON SYNDROME [None]
